FAERS Safety Report 24552172 (Version 2)
Quarter: 2024Q4

REPORT INFORMATION
  Report Type: Spontaneous
  Country: GB (occurrence: GB)
  Receive Date: 20241026
  Receipt Date: 20241122
  Transmission Date: 20250114
  Serious: Yes (Other)
  Sender: TEVA
  Company Number: GB-MHRA-32929134

PATIENT
  Age: 40 Year

DRUGS (1)
  1. LEVOTHYROXINE [Suspect]
     Active Substance: LEVOTHYROXINE
     Indication: Surgery
     Route: 065
     Dates: start: 20240617

REACTIONS (2)
  - Myalgia [Unknown]
  - Motor dysfunction [Unknown]
